FAERS Safety Report 4336287-3 (Version None)
Quarter: 2004Q2

REPORT INFORMATION
  Report Type: 
  Country: None (occurrence: None)
  Receive Date: 20040409
  Receipt Date: 20040409
  Transmission Date: 20050107
  Serious: Yes (Life-Threatening)
  Sender: FDA-Public Use
  Company Number: None

PATIENT
  Age: 83 Year
  Sex: Male

DRUGS (5)
  1. LEVOFLOXACIN [Suspect]
     Indication: GRAFT INFECTION
     Dosage: 500 MG PO QD
     Route: 048
     Dates: start: 20030228
  2. SIMVASTATIN [Concomitant]
  3. OMEPRAZOLE [Concomitant]
  4. CLOPIDRIGEL [Concomitant]
  5. ALBUTEROL [Concomitant]

REACTIONS (1)
  - COMA [None]
